FAERS Safety Report 7584113-1 (Version None)
Quarter: 2011Q2

REPORT INFORMATION
  Report Type: 
  Country: None (occurrence: None)
  Receive Date: 20110628
  Receipt Date: 20110628
  Transmission Date: 20111010
  Serious: Yes (Life-Threatening, Hospitalization, Other)
  Sender: FDA-Public Use
  Company Number: None

PATIENT
  Age: 64 Year
  Sex: Male
  Weight: 98.8842 kg

DRUGS (1)
  1. SIMVASTATIN [Suspect]
     Indication: BLOOD CHOLESTEROL INCREASED
     Dosage: 1-ONE TABLET DAILY BEDTIME
     Dates: start: 20101122, end: 20110501

REACTIONS (7)
  - MUSCULAR WEAKNESS [None]
  - VISION BLURRED [None]
  - CHROMATURIA [None]
  - MYALGIA [None]
  - DIZZINESS [None]
  - ARTHROPATHY [None]
  - ASTHENIA [None]
